FAERS Safety Report 10744325 (Version 3)
Quarter: 2018Q1

REPORT INFORMATION
  Report Type: Spontaneous
  Country: US (occurrence: US)
  Receive Date: 20150128
  Receipt Date: 20180126
  Transmission Date: 20180508
  Serious: Yes (Hospitalization)
  Sender: FDA-Public Use
  Company Number: US-PFIZER INC-2015031484

PATIENT
  Age: 61 Year
  Sex: Female
  Weight: 90.7 kg

DRUGS (2)
  1. REVATIO [Suspect]
     Active Substance: SILDENAFIL CITRATE
     Dosage: 1 DF, 3X/DAY, (1 TABLET, THREE TIMES A DAY)
     Route: 048
  2. REVATIO [Suspect]
     Active Substance: SILDENAFIL CITRATE
     Indication: PULMONARY HYPERTENSION
     Dosage: 20MG TABLETS, TAKE 2 TABLETS, THREE TIMES A DAY
     Route: 048
     Dates: start: 2014

REACTIONS (10)
  - Drug prescribing error [Unknown]
  - Left ventricular failure [Recovering/Resolving]
  - Drug dose omission [Not Recovered/Not Resolved]
  - Condition aggravated [Recovering/Resolving]
  - Influenza [Unknown]
  - Dysphonia [Unknown]
  - Condition aggravated [Recovering/Resolving]
  - Dyspnoea [Recovering/Resolving]
  - Cough [Unknown]
  - Product use issue [Unknown]

NARRATIVE: CASE EVENT DATE: 201407
